FAERS Safety Report 17604784 (Version 1)
Quarter: 2020Q1

REPORT INFORMATION
  Report Type: Spontaneous
  Country: CN (occurrence: CN)
  Receive Date: 20200331
  Receipt Date: 20200331
  Transmission Date: 20200409
  Serious: Yes (Hospitalization, Other)
  Sender: FDA-Public Use
  Company Number: CN-ROCHE-2573622

PATIENT
  Age: 47 Year
  Sex: Male

DRUGS (4)
  1. RANIBIZUMAB. [Suspect]
     Active Substance: RANIBIZUMAB
     Dosage: IN THE RIGHT EYE VITREOUS BODY
     Route: 065
  2. RANIBIZUMAB. [Suspect]
     Active Substance: RANIBIZUMAB
     Indication: GLAUCOMA
     Dosage: THE LEFT EYE VITREOUS BODY
     Route: 065
     Dates: start: 20180820
  3. RANIBIZUMAB. [Suspect]
     Active Substance: RANIBIZUMAB
     Indication: RETINAL VEIN OCCLUSION
     Dosage: INJECTION IN THE RIGHT EYE VITREOUS BODY
     Route: 065
     Dates: start: 20180529
  4. RANIBIZUMAB. [Suspect]
     Active Substance: RANIBIZUMAB
     Dosage: IN THE RIGHT EYE VITREOUS BODY
     Route: 065
     Dates: start: 20180830

REACTIONS (4)
  - Ocular hypertension [Unknown]
  - Glaucoma [Unknown]
  - Off label use [Unknown]
  - Intentional product use issue [Unknown]
